FAERS Safety Report 5678567-5 (Version None)
Quarter: 2008Q1

REPORT INFORMATION
  Report Type: 
  Country: None (occurrence: None)
  Receive Date: 20080325
  Receipt Date: 20080317
  Transmission Date: 20080703
  Serious: Yes (Other)
  Sender: FDA-Public Use
  Company Number: PHRM2008FR00804

PATIENT
  Age: 91 Year
  Sex: Female
  Weight: 60 kg

DRUGS (2)
  1. CALDINE [Concomitant]
     Indication: HYPERTENSION
     Dosage: 4.5 MG, QD
     Route: 048
  2. COTAREG [Suspect]
     Indication: HYPERTENSION
     Dosage: 160/25 MG, QD
     Route: 048
     Dates: start: 20070216, end: 20070924

REACTIONS (2)
  - NEPHROANGIOSCLEROSIS [None]
  - RENAL FAILURE [None]
